FAERS Safety Report 16654862 (Version 2)
Quarter: 2019Q3

REPORT INFORMATION
  Report Type: Other
  Country: DE (occurrence: DE)
  Receive Date: 20190801
  Receipt Date: 20190904
  Transmission Date: 20191004
  Serious: Yes (Hospitalization)
  Sender: FDA-Public Use
  Company Number: DE-CELLTRION INC.-2019DE023162

PATIENT

DRUGS (4)
  1. DOCETAXEL. [Suspect]
     Active Substance: DOCETAXEL
     Dosage: 150 MG PER 1 CYCLE (MOST RECENT DOSE OF DOCETAXEL PRIOR TO SAE)
     Route: 042
     Dates: start: 20190613
  2. TRASTUZUMAB (UNKNOWN) [Suspect]
     Active Substance: TRASTUZUMAB
     Indication: BREAST CANCER
     Dosage: 860 MG PER 1 CYCLE (MOST RECENT DOSE OF TRASTUZUMAB 642 MG PRIOR TO SAE: 13/JUN/2019)
     Route: 042
     Dates: start: 20181203, end: 20190613
  3. RED BLOOD CELLS, CONCENTRATED [Concomitant]
     Active Substance: HUMAN RED BLOOD CELL
     Dosage: 550 ML
     Route: 042
     Dates: start: 20190524, end: 20190524
  4. DOCETAXEL. [Suspect]
     Active Substance: DOCETAXEL
     Indication: BREAST CANCER
     Dosage: 200 MG PER 1 CYCLE
     Route: 042
     Dates: start: 20181203, end: 20190502

REACTIONS (2)
  - Asthma [Unknown]
  - Overdose [Unknown]

NARRATIVE: CASE EVENT DATE: 20190629
